FAERS Safety Report 4544255-1 (Version None)
Quarter: 2004Q4

REPORT INFORMATION
  Report Type: 
  Country: None (occurrence: None)
  Receive Date: 20041230
  Receipt Date: 20041221
  Transmission Date: 20050328
  Serious: Yes (Hospitalization)
  Sender: FDA-Public Use
  Company Number: 2004AP06371

PATIENT
  Age: 69 Year
  Sex: Female

DRUGS (11)
  1. IRESSA [Suspect]
     Indication: NON-SMALL CELL LUNG CANCER
     Dosage: 250 MG DAILY PO
     Route: 048
     Dates: start: 20041020, end: 20041215
  2. DALACIN [Concomitant]
  3. CONIEL [Concomitant]
  4. MEVALOTIN [Concomitant]
  5. MARZULENE [Concomitant]
  6. TENORMIN [Concomitant]
  7. BEPRICOR [Concomitant]
  8. BROCIN-CODEINE [Concomitant]
  9. TERRA-CORTRIL [Concomitant]
  10. HIRUDOID [Concomitant]
  11. RADIATION THERAPY [Concomitant]

REACTIONS (10)
  - ABDOMINAL PAIN UPPER [None]
  - ANAEMIA [None]
  - CONDITION AGGRAVATED [None]
  - DIARRHOEA [None]
  - FAECES DISCOLOURED [None]
  - FAECES HARD [None]
  - GASTRIC ULCER [None]
  - MARKEDLY REDUCED DIETARY INTAKE [None]
  - MUSCLE TIGHTNESS [None]
  - RASH [None]
